FAERS Safety Report 7964951-3 (Version None)
Quarter: 2011Q4

REPORT INFORMATION
  Report Type: 
  Country: None (occurrence: None)
  Receive Date: 20111206
  Receipt Date: 20111206
  Transmission Date: 20120403
  Serious: Yes (Hospitalization)
  Sender: FDA-Public Use
  Company Number: None

PATIENT
  Age: 76 Year
  Sex: Female

DRUGS (9)
  1. FUROSEMIDE [Concomitant]
  2. GLIPIZIDE [Concomitant]
  3. MOMETASONE FUROATE [Concomitant]
  4. LETAIRIS [Suspect]
     Indication: PULMONARY HYPERTENSION
     Dosage: LETAIRIS 5 MG DAILY ORALLY
     Route: 048
  5. ALBUTEROL [Concomitant]
  6. POTASSIUM CHLORIDE [Concomitant]
  7. ANASTROZOLE [Concomitant]
  8. SPIRONOLACTONE [Concomitant]
  9. MINIPERSS [Concomitant]

REACTIONS (2)
  - PULMONARY OEDEMA [None]
  - HYPOXIA [None]
